FAERS Safety Report 24912005 (Version 1)
Quarter: 2025Q1

REPORT INFORMATION
  Report Type: Spontaneous
  Country: AU (occurrence: AU)
  Receive Date: 20250131
  Receipt Date: 20250131
  Transmission Date: 20250408
  Serious: Yes (Death, Life-Threatening, Hospitalization, Other)
  Sender: PURDUE
  Company Number: AU-PURDUE PHARMA-USA-2025-0314988

PATIENT
  Age: 64 Year
  Sex: Male
  Weight: 110 kg

DRUGS (3)
  1. OXYCODONE HYDROCHLORIDE [Suspect]
     Active Substance: OXYCODONE HYDROCHLORIDE
     Indication: Product used for unknown indication
     Route: 048
  2. PROPRANOLOL [Suspect]
     Active Substance: PROPRANOLOL HYDROCHLORIDE
     Indication: Anxiety
     Dosage: 80 MILLIGRAM, DAILY
     Route: 048
  3. PROPRANOLOL [Suspect]
     Active Substance: PROPRANOLOL HYDROCHLORIDE
     Route: 048

REACTIONS (6)
  - Overdose [Fatal]
  - Bradycardia [Unknown]
  - Hypotension [Unknown]
  - Seizure [Unknown]
  - Cardiac arrest [Unknown]
  - Brain injury [Unknown]
